FAERS Safety Report 9523762 (Version 1)
Quarter: 2013Q3

REPORT INFORMATION
  Report Type: Report from Study
  Country: US (occurrence: US)
  Receive Date: 20130915
  Receipt Date: 20130915
  Transmission Date: 20140515
  Serious: Yes (Hospitalization)
  Sender: FDA-Public Use
  Company Number: PHHO2013US003940

PATIENT
  Age: 13 Year
  Sex: Male
  Weight: 35.2 kg

DRUGS (1)
  1. ICL670A [Suspect]
     Indication: IRON OVERLOAD
     Dosage: 750 MG, QD
     Route: 048
     Dates: start: 2007

REACTIONS (7)
  - Dyspnoea [Recovering/Resolving]
  - Tachycardia [Recovering/Resolving]
  - Influenza [Recovered/Resolved]
  - Anaemia [Unknown]
  - Blood bilirubin unconjugated increased [Unknown]
  - Respiratory distress [Unknown]
  - Haemolysis [Unknown]
